FAERS Safety Report 25226989 (Version 1)
Quarter: 2025Q2

REPORT INFORMATION
  Report Type: Spontaneous
  Country: US (occurrence: US)
  Receive Date: 20250422
  Receipt Date: 20250422
  Transmission Date: 20250716
  Serious: No
  Sender: BRISTOL-MYERS SQUIBB COMPANY
  Company Number: US-BRISTOL-MYERS SQUIBB COMPANY-2025-055831

PATIENT
  Age: 66 Year
  Sex: Male
  Weight: 99.79 kg

DRUGS (1)
  1. ELIQUIS [Suspect]
     Active Substance: APIXABAN
     Indication: Atrial fibrillation
     Route: 048
     Dates: start: 2015

REACTIONS (5)
  - Nerve injury [Unknown]
  - Gait disturbance [Unknown]
  - Spinal pain [Unknown]
  - Arthralgia [Unknown]
  - Rash macular [Unknown]

NARRATIVE: CASE EVENT DATE: 20150101
